FAERS Safety Report 9616907 (Version 2)
Quarter: 2013Q4

REPORT INFORMATION
  Report Type: Spontaneous
  Country: US (occurrence: US)
  Receive Date: 20131011
  Receipt Date: 20131127
  Transmission Date: 20140711
  Serious: Yes (Hospitalization)
  Sender: FDA-Public Use
  Company Number: US-PFIZER INC-2013291288

PATIENT
  Age: 80 Year
  Sex: Female
  Weight: 62.59 kg

DRUGS (3)
  1. NORVASC [Suspect]
     Indication: HYPERTENSION
     Dosage: UNK, 1X/DAY
     Route: 048
     Dates: start: 201307, end: 201307
  2. VITAMIN C [Concomitant]
     Dosage: UNK
  3. VITAMIN B [Concomitant]
     Dosage: UNK

REACTIONS (8)
  - Hypersensitivity [Unknown]
  - Blood sodium decreased [Recovered/Resolved]
  - Polyuria [Recovered/Resolved]
  - Pollakiuria [Recovered/Resolved]
  - Local swelling [Recovered/Resolved]
  - Erythema [Recovered/Resolved]
  - Gait disturbance [Recovered/Resolved]
  - Swelling [Recovered/Resolved]
